FAERS Safety Report 5063838-6 (Version None)
Quarter: 2006Q3

REPORT INFORMATION
  Report Type: 
  Country: None (occurrence: None)
  Receive Date: 20060703
  Receipt Date: 20051107
  Transmission Date: 20061208
  Serious: No
  Sender: FDA-Public Use
  Company Number: 2005S1010951

PATIENT
  Age: 40 Year
  Sex: Male

DRUGS (9)
  1. CLOZAPINE [Suspect]
     Dosage: SEE IMAGE
     Route: 048
  2. ATORVASTATIN CALCIUM [Concomitant]
  3. DOCUSATE SODIUM [Concomitant]
  4. IMIPRAMINE HCL [Concomitant]
  5. LACTULOSE [Concomitant]
  6. MINERAL OIL EMULSION [Concomitant]
  7. LAMOTRIGINE [Concomitant]
  8. LEVOTHYROXINE SODIUM [Concomitant]
  9. LITHIUM CARBONATE [Concomitant]

REACTIONS (1)
  - GRANULOCYTOPENIA [None]
